FAERS Safety Report 7998606-6 (Version None)
Quarter: 2011Q4

REPORT INFORMATION
  Report Type: 
  Country: None (occurrence: None)
  Receive Date: 20111221
  Receipt Date: 20111212
  Transmission Date: 20120403
  Serious: Yes (Hospitalization)
  Sender: FDA-Public Use
  Company Number: FR-EISAI INC-E2090-00678-SPO-FR

PATIENT
  Sex: Female
  Weight: 80 kg

DRUGS (12)
  1. ZONEGRAN [Suspect]
     Route: 048
     Dates: start: 20090213, end: 20090219
  2. VARENICLINE TARTRATE [Suspect]
     Dosage: UNKNOWN
     Route: 048
     Dates: start: 20090223, end: 20090228
  3. PAROXETINE HCL [Concomitant]
     Dosage: 20 MG
     Route: 048
  4. ZONEGRAN [Suspect]
     Route: 048
     Dates: start: 20090227, end: 20090302
  5. MIOREL [Concomitant]
     Dosage: UNKNOWN
  6. ZONEGRAN [Suspect]
     Route: 048
     Dates: start: 20090220, end: 20090226
  7. LANSOPRAZOLE [Suspect]
     Dosage: 30 MG
     Route: 048
     Dates: start: 20081201
  8. FENOFIBRATE [Suspect]
     Dosage: 100 MG
     Route: 048
     Dates: start: 20090101, end: 20090303
  9. ZONEGRAN [Suspect]
     Route: 048
     Dates: start: 20090303
  10. ACETAMINOPHEN [Suspect]
     Dosage: UNKNOWN
     Route: 048
  11. ATARAX [Concomitant]
     Dosage: 100 MG
     Route: 048
  12. KEPPRA [Concomitant]
     Route: 048

REACTIONS (6)
  - HYPOAESTHESIA [None]
  - VOMITING [None]
  - BACK PAIN [None]
  - ASTHENIA [None]
  - HEADACHE [None]
  - MYALGIA [None]
